FAERS Safety Report 5758100-X (Version None)
Quarter: 2008Q2

REPORT INFORMATION
  Report Type: 
  Country: None (occurrence: None)
  Receive Date: 20080530
  Receipt Date: 20080522
  Transmission Date: 20081010
  Serious: Yes (Other)
  Sender: FDA-Public Use
  Company Number: 2008AP001260

PATIENT
  Age: 69 Year
  Sex: Female

DRUGS (3)
  1. SELEGILINE HCL [Suspect]
     Indication: PARKINSON'S DISEASE
     Dosage: 5 MG; BID; PO
     Route: 048
     Dates: start: 20000101
  2. ROPINIROLE HCL [Concomitant]
  3. CARBIDOPA AND LEVODOPA [Concomitant]

REACTIONS (2)
  - COELIAC DISEASE [None]
  - WEIGHT DECREASED [None]
